FAERS Safety Report 4295625-0 (Version None)
Quarter: 2004Q1

REPORT INFORMATION
  Report Type: 
  Country: None (occurrence: None)
  Receive Date: 20040216
  Receipt Date: 20030731
  Transmission Date: 20041129
  Serious: No
  Sender: FDA-Public Use
  Company Number: US-GLAXOSMITHKLINE-A0419219A

PATIENT
  Sex: Female

DRUGS (2)
  1. PAXIL [Suspect]
     Dates: start: 20010101
  2. PAXIL CR [Suspect]

REACTIONS (6)
  - ANGER [None]
  - CRYING [None]
  - DEPRESSION [None]
  - MOOD SWINGS [None]
  - TENSION [None]
  - WEIGHT INCREASED [None]
